FAERS Safety Report 6968256-9 (Version None)
Quarter: 2010Q3

REPORT INFORMATION
  Report Type: 
  Country: None (occurrence: None)
  Receive Date: 20100907
  Receipt Date: 20100831
  Transmission Date: 20110219
  Serious: Yes (Life-Threatening)
  Sender: FDA-Public Use
  Company Number: JP-ROCHE-712464

PATIENT
  Sex: Male
  Weight: 59 kg

DRUGS (3)
  1. AVASTIN [Suspect]
     Indication: RECTAL CANCER
     Dosage: NOTE: DOSAGE IS UNCERTAIN
     Route: 041
     Dates: start: 20100524
  2. ISOVORIN [Concomitant]
     Indication: RECTAL CANCER
     Route: 041
  3. ELPLAT [Concomitant]
     Route: 041

REACTIONS (1)
  - ANAPHYLACTIC SHOCK [None]
